FAERS Safety Report 17098564 (Version 1)
Quarter: 2019Q4

REPORT INFORMATION
  Report Type: Spontaneous
  Country: US (occurrence: US)
  Receive Date: 20191105
  Receipt Date: 20191105
  Transmission Date: 20200122
  Serious: No
  Sender: FDA-Public Use
  Company Number: None

PATIENT
  Sex: Female

DRUGS (1)
  1. MIGLUSTAT. [Suspect]
     Active Substance: MIGLUSTAT
     Indication: NIEMANN-PICK DISEASE
     Dosage: ?          OTHER DOSE:2 CAPSULES AM 1 PM;?
     Route: 048
     Dates: start: 20191004

REACTIONS (2)
  - Diarrhoea [None]
  - Therapy cessation [None]
